FAERS Safety Report 7406978-6 (Version None)
Quarter: 2011Q2

REPORT INFORMATION
  Report Type: 
  Country: None (occurrence: None)
  Receive Date: 20110411
  Receipt Date: 20090726
  Transmission Date: 20111010
  Serious: Yes (Hospitalization, Other)
  Sender: FDA-Public Use
  Company Number: US-BAYER-200928002NA

PATIENT
  Age: 55 Year
  Sex: Male
  Weight: 107 kg

DRUGS (42)
  1. COUMADIN [Concomitant]
     Dosage: 5 MG, UNK
     Route: 048
  2. METFORMIN HCL [Concomitant]
     Dosage: 500 MG, BID
     Route: 048
  3. PROMETHAZINE HYDROCHLORIDE [Concomitant]
     Dosage: 25 MG, UNK
     Route: 042
     Dates: start: 20051216
  4. VASOPRESSIN [Concomitant]
     Dosage: 20 MG, UNK
     Route: 042
     Dates: start: 20051217, end: 20051217
  5. VANCOMYCIN HCL [Concomitant]
     Dosage: 500 MG, UNK
     Route: 042
     Dates: start: 20051217, end: 20051217
  6. LANSOPRAZOLE [Concomitant]
     Dosage: 30 MG, UNK
     Route: 048
  7. HEPARIN [Concomitant]
     Dosage: 2000- 10000 UNITS
     Route: 042
  8. HYDROMORPHONE HCL [Concomitant]
     Dosage: 4 MG/ML, UNK
     Route: 042
     Dates: start: 20051216
  9. PAPAVERINE [Concomitant]
     Dosage: UNK
     Route: 042
     Dates: start: 20051217, end: 20051217
  10. FENTANYL [Concomitant]
     Dosage: 100-250 MCG
     Route: 042
     Dates: start: 20051217, end: 20051217
  11. TRASYLOL [Suspect]
     Indication: CORONARY ARTERY BYPASS
     Dosage: 65 ML, Q1HR
     Route: 042
     Dates: start: 20051217, end: 20051217
  12. ACETYLSALICYLIC ACID SRT [Concomitant]
     Dosage: 81-325 MG DAILY
     Route: 048
  13. DOPAMINE HCL [Concomitant]
     Dosage: 250 MG-500 MG
     Route: 042
     Dates: start: 20051216, end: 20051216
  14. DOBUTAMINE HCL [Concomitant]
     Dosage: 500 MG, UNK
     Route: 042
     Dates: start: 20051217, end: 20051217
  15. MILRINONE [Concomitant]
     Dosage: 20 MG, UNK
     Route: 042
     Dates: start: 20051217, end: 20051217
  16. RED BLOOD CELLS [Concomitant]
  17. TRASYLOL [Suspect]
     Indication: MITRAL VALVE REPAIR
     Dosage: 1 ML INITAL TEST DOSE
     Route: 042
     Dates: start: 20051217, end: 20051217
  18. TYLENOL REGULAR [Concomitant]
     Dosage: 350 MG, UNK
     Route: 048
  19. FENTANYL [Concomitant]
     Dosage: 150 MCG/HOUR
     Route: 042
     Dates: start: 20051216, end: 20051216
  20. CEFEPIME [Concomitant]
     Route: 042
  21. INSULIN [Concomitant]
     Dosage: 100 U, UNK
     Route: 042
  22. DIAZEPAM [Concomitant]
     Dosage: 10 MG, UNK
     Route: 042
     Dates: start: 20051216
  23. NOREPINEPHRINE BITARTRATE [Concomitant]
     Dosage: 1 MG, UNK
     Route: 042
     Dates: start: 20051217, end: 20051217
  24. MANNITOL [Concomitant]
     Dosage: 12.5 G, UNK
     Route: 042
     Dates: start: 20051217, end: 20051217
  25. SODIUM NITROPRUSSIDE [Concomitant]
     Dosage: 5 MG, UNK
     Route: 042
     Dates: start: 20051217, end: 20051217
  26. VECURONIUM BROMIDE [Concomitant]
     Dosage: 10-20 MG
     Route: 042
     Dates: start: 20051217, end: 20051217
  27. TRASYLOL [Suspect]
     Dosage: 200 ML PUMP PRIME DOSE
     Route: 042
     Dates: start: 20051217, end: 20051217
  28. LOVENOX [Concomitant]
     Dosage: 100 MG, UNK
     Route: 058
  29. COREG [Concomitant]
     Dosage: 25 MG, UNK
     Route: 048
  30. HEPARIN [Concomitant]
     Dosage: 6000-30000 UNITS
     Route: 042
     Dates: start: 20051217, end: 20051217
  31. PLASMA [Concomitant]
  32. POTASSIUM CHLORIDE [Concomitant]
  33. GLIPIZIDE [Concomitant]
     Dosage: 5 -10 MG
     Route: 048
  34. ATENOLOL [Concomitant]
     Dosage: 50 MG, QD
     Route: 048
  35. MIDAZOLAM HCL [Concomitant]
     Dosage: 2 MG, UNK
     Route: 042
  36. LASIX [Concomitant]
     Dosage: 40-80 MG
     Route: 042
     Dates: start: 20051216
  37. SOLU-MEDROL [Concomitant]
     Dosage: 200 MG, UNK
     Route: 042
     Dates: start: 20051217, end: 20051217
  38. SIMVASTATIN [Concomitant]
     Dosage: 10 MG, QD
     Route: 048
  39. THROMBIN LOCAL SOLUTION [Concomitant]
     Dosage: 5000 U, UNK
     Route: 042
     Dates: start: 20051217, end: 20051217
  40. INSULIN [Concomitant]
     Dosage: 100 UNITS/100 ML OVER 2 HOURS
     Route: 042
     Dates: start: 20051217, end: 20051217
  41. VERSED [Concomitant]
     Dosage: 1 MG, UNK
     Route: 042
     Dates: start: 20051217, end: 20051217
  42. AMIODARONE HCL [Concomitant]

REACTIONS (11)
  - CARDIOGENIC SHOCK [None]
  - DEPRESSION [None]
  - PAIN [None]
  - ANHEDONIA [None]
  - DEEP VEIN THROMBOSIS [None]
  - INJURY [None]
  - UNEVALUABLE EVENT [None]
  - RENAL FAILURE [None]
  - MYOCARDIAL INFARCTION [None]
  - FEAR [None]
  - ANXIETY [None]
